FAERS Safety Report 20701941 (Version 1)
Quarter: 2022Q2

REPORT INFORMATION
  Report Type: Spontaneous
  Country: US (occurrence: None)
  Receive Date: 20220412
  Receipt Date: 20220412
  Transmission Date: 20220721
  Serious: Yes (Hospitalization)
  Sender: FDA-Public Use
  Company Number: None

PATIENT
  Sex: Female

DRUGS (2)
  1. ESBRIET [Suspect]
     Active Substance: PIRFENIDONE
     Indication: Idiopathic pulmonary fibrosis
     Dosage: OTHER FREQUENCY : TID WITH MEALS;?
     Route: 048
     Dates: start: 20200917
  2. ESBRIET [Suspect]
     Active Substance: PIRFENIDONE
     Dosage: OTHER FREQUENCY : TID WITH MEALS;?
     Route: 048

REACTIONS (3)
  - Nausea [None]
  - Pneumothorax [None]
  - Therapy interrupted [None]
